FAERS Safety Report 9623707 (Version 1)
Quarter: 2013Q4

REPORT INFORMATION
  Report Type: Spontaneous
  Country: DE (occurrence: None)
  Receive Date: 20131010
  Receipt Date: 20131010
  Transmission Date: 20140711
  Serious: Yes (Hospitalization)
  Sender: FDA-Public Use
  Company Number: 1310-1258

PATIENT
  Age: 78 Year
  Sex: Female

DRUGS (1)
  1. EYLEA [Suspect]
     Indication: AGE-RELATED MACULAR DEGENERATION
     Dates: start: 20130705

REACTIONS (6)
  - Malaise [None]
  - Ovarian cyst [None]
  - Oophorectomy [None]
  - Iatrogenic injury [None]
  - Haemorrhage [None]
  - Mass [None]
